FAERS Safety Report 4689208-8 (Version None)
Quarter: 2005Q2

REPORT INFORMATION
  Report Type: 
  Country: None (occurrence: None)
  Receive Date: 20050608
  Receipt Date: 20050210
  Transmission Date: 20051028
  Serious: No
  Sender: FDA-Public Use
  Company Number: 2005-BP-00614BP

PATIENT
  Age: 64 Year
  Sex: Female
  Weight: 79.8 kg

DRUGS (2)
  1. SPIRIVA [Suspect]
     Indication: CHRONIC OBSTRUCTIVE PULMONARY DISEASE
     Dosage: 18 MCG (18 MCG), IH
     Route: 055
  2. CADVET [Concomitant]

REACTIONS (4)
  - ARRHYTHMIA [None]
  - ATRIAL FLUTTER [None]
  - CHEST DISCOMFORT [None]
  - TACHYCARDIA [None]
